FAERS Safety Report 4952147-9 (Version None)
Quarter: 2006Q1

REPORT INFORMATION
  Report Type: 
  Country: None (occurrence: None)
  Receive Date: 20060323
  Receipt Date: 20060314
  Transmission Date: 20060701
  Serious: Yes (Other)
  Sender: FDA-Public Use
  Company Number: PHBS2006BR04051

PATIENT
  Age: 37 Year
  Sex: Female
  Weight: 75 kg

DRUGS (4)
  1. TEGRETOL [Suspect]
     Indication: NEURITIS
     Dosage: 200 MG/DAY
     Route: 048
  2. TEGRETOL [Suspect]
     Dosage: 200 MG, BID
     Route: 048
     Dates: start: 20060316
  3. TEGRETOL [Suspect]
     Dosage: 200 MG, TID
     Route: 048
     Dates: start: 20060319
  4. TEGRETOL [Suspect]
     Dosage: 200 MG/DAY
     Route: 048
     Dates: start: 20060314

REACTIONS (7)
  - GENERALISED ERYTHEMA [None]
  - GENERALISED OEDEMA [None]
  - PARAESTHESIA [None]
  - PRURITUS [None]
  - RASH [None]
  - SWELLING FACE [None]
  - THROAT TIGHTNESS [None]
